FAERS Safety Report 6162622-X (Version None)
Quarter: 2009Q2

REPORT INFORMATION
  Report Type: 
  Country: None (occurrence: None)
  Receive Date: 20090421
  Receipt Date: 20090410
  Transmission Date: 20091009
  Serious: Yes (Hospitalization, Other)
  Sender: FDA-Public Use
  Company Number: JP-PFIZER INC-2008027887

PATIENT

DRUGS (11)
  1. ZOLOFT [Suspect]
     Indication: DEPRESSION
     Route: 048
     Dates: start: 20080111, end: 20080327
  2. TOLEDOMIN [Suspect]
     Indication: DEPRESSION
     Dosage: FREQUENCY: BID
     Route: 048
     Dates: start: 20080229, end: 20080327
  3. RESLIN [Suspect]
     Indication: DEPRESSION
     Dosage: FREQUENCY: QD
     Route: 048
     Dates: start: 20080313, end: 20080327
  4. FLUVOXAMINE MALEATE [Concomitant]
     Route: 048
     Dates: start: 20080301, end: 20080313
  5. GANATON [Concomitant]
     Route: 048
     Dates: start: 20080115
  6. BIO THREE [Concomitant]
     Route: 048
     Dates: start: 20080313
  7. ROHYPNOL [Concomitant]
     Route: 048
     Dates: start: 20080201
  8. HERBAL PREPARATION [Concomitant]
     Route: 048
     Dates: start: 20080313, end: 20080324
  9. HERBAL PREPARATION [Concomitant]
     Route: 048
     Dates: start: 20080325, end: 20080326
  10. HERBAL PREPARATION [Concomitant]
     Route: 048
     Dates: start: 20080327, end: 20080413
  11. TETRAMIDE [Concomitant]
     Route: 048
     Dates: start: 20080312, end: 20080312

REACTIONS (15)
  - ANXIETY [None]
  - BLOOD PRESSURE INCREASED [None]
  - COMPLETED SUICIDE [None]
  - FAECAL INCONTINENCE [None]
  - HALLUCINATION, AUDITORY [None]
  - INSOMNIA [None]
  - IRRITABILITY [None]
  - MUSCLE TIGHTNESS [None]
  - MUSCLE TWITCHING [None]
  - PYREXIA [None]
  - RESTLESSNESS [None]
  - STUPOR [None]
  - TONIC CONVULSION [None]
  - TREMOR [None]
  - URINARY INCONTINENCE [None]
